FAERS Safety Report 7128610-1 (Version None)
Quarter: 2010Q4

REPORT INFORMATION
  Report Type: 
  Country: None (occurrence: None)
  Receive Date: 20101130
  Receipt Date: 20101123
  Transmission Date: 20110411
  Serious: Yes (Hospitalization)
  Sender: FDA-Public Use
  Company Number: BR-ROCHE-676219

PATIENT
  Sex: Female
  Weight: 45 kg

DRUGS (13)
  1. TOCILIZUMAB [Suspect]
     Indication: RHEUMATOID ARTHRITIS
     Dosage: TEMPORARILY INTERRUPTED. FORM AS PER PROTOCOL., LAST DOSE PRIOR TO THE EVENT: 24 NOV 2009
     Route: 042
     Dates: start: 20070807, end: 20091222
  2. TOCILIZUMAB [Suspect]
     Dosage: LAST DOSE PRIOR TO SAE: 11 MAY 2010.
     Route: 042
     Dates: end: 20100511
  3. TOCILIZUMAB [Suspect]
     Dosage: WAS TEMPORARILY DISCONTINUED. FORM: SUS
     Route: 042
     Dates: end: 20100608
  4. TOCILIZUMAB [Suspect]
     Route: 042
     Dates: start: 20100706
  5. PLACEBO [Suspect]
     Indication: RHEUMATOID ARTHRITIS
     Dosage: PREVIOUSLY ENROLLED IN WA18063, RANDOMISATION NUMBER: 101221
     Route: 042
  6. PREDNISONE [Concomitant]
     Dates: start: 20020801
  7. ALENDRONATE SODIUM [Concomitant]
     Dosage: TOTAL DAILY DOSE: 70 MG QS
     Dates: start: 20070424
  8. CALCIUM CARBONATE [Concomitant]
     Dates: start: 20070227
  9. VITAMIN D3 [Concomitant]
     Dosage: TOATAL DAILY DOSE: 400 U.
     Dates: start: 20070227
  10. CHLOROQUINE PHOSPHATE [Concomitant]
     Dosage: DRUG: CLOROQUINE BIPHOSPHATE, TOTAL DAILY DOSE: 250 MG D
     Dates: start: 20070801
  11. NIMESULIDE [Concomitant]
     Dates: start: 20091027
  12. OMEPRAZOLE [Concomitant]
     Dates: start: 20080220
  13. HYDROXYCHLOROQUINE SULFATE [Concomitant]
     Dates: start: 20100414

REACTIONS (2)
  - HUMERUS FRACTURE [None]
  - PERIARTHRITIS [None]
